FAERS Safety Report 7293074-4 (Version None)
Quarter: 2011Q1

REPORT INFORMATION
  Report Type: 
  Country: None (occurrence: None)
  Receive Date: 20110215
  Receipt Date: 20110114
  Transmission Date: 20110831
  Serious: No
  Sender: FDA-Public Use
  Company Number: US-BAYER-2011-005065

PATIENT
  Sex: Female
  Weight: 69 kg

DRUGS (1)
  1. ALEVE (CAPLET) [Suspect]
     Dosage: 2 DF, UNK
     Route: 048
     Dates: start: 20110113

REACTIONS (4)
  - PRURITUS [None]
  - SKIN EXFOLIATION [None]
  - BLISTER [None]
  - MEDICATION ERROR [None]
